FAERS Safety Report 25167416 (Version 2)
Quarter: 2025Q2

REPORT INFORMATION
  Report Type: Spontaneous
  Country: US (occurrence: US)
  Receive Date: 20250407
  Receipt Date: 20250630
  Transmission Date: 20250716
  Serious: No
  Sender: SANOFI AVENTIS
  Company Number: US-SA-2025SA098499

PATIENT
  Age: 54 Year
  Sex: Female

DRUGS (1)
  1. DUPIXENT [Suspect]
     Active Substance: DUPILUMAB
     Indication: Eosinophilic oesophagitis
     Dosage: 300 MG, QW
     Route: 058
     Dates: start: 202412

REACTIONS (4)
  - Influenza [Not Recovered/Not Resolved]
  - Cough [Not Recovered/Not Resolved]
  - Secretion discharge [Not Recovered/Not Resolved]
  - Injection site pain [Unknown]

NARRATIVE: CASE EVENT DATE: 20241201
